FAERS Safety Report 5400708-5 (Version None)
Quarter: 2007Q3

REPORT INFORMATION
  Report Type: 
  Country: None (occurrence: None)
  Receive Date: 20070730
  Receipt Date: 20070719
  Transmission Date: 20080115
  Serious: Yes (Hospitalization)
  Sender: FDA-Public Use
  Company Number: ES-PFIZER INC-2007061543

PATIENT
  Sex: Male
  Weight: 72 kg

DRUGS (4)
  1. EPIRUBICIN HYDROCHLORIDE [Suspect]
     Route: 042
  2. OXALIPLATIN [Suspect]
     Route: 042
  3. CAPECITABINE [Suspect]
     Route: 048
  4. HIPOARTEL [Concomitant]

REACTIONS (2)
  - ASTHENIA [None]
  - NEUTROPENIA [None]
